FAERS Safety Report 5312949-6 (Version None)
Quarter: 2007Q2

REPORT INFORMATION
  Report Type: 
  Country: None (occurrence: None)
  Receive Date: 20070424
  Receipt Date: 20070418
  Transmission Date: 20071010
  Serious: Yes (Hospitalization, Other)
  Sender: FDA-Public Use
  Company Number: 163-21880-07040936

PATIENT
  Age: 62 Year
  Sex: Female
  Weight: 52.7 kg

DRUGS (2)
  1. REVLIMID [Suspect]
     Indication: MULTIPLE MYELOMA
     Dosage: 25 MG, DAILY ON DAYS 1-21 EVERY 28 DAYS, ORAL
     Route: 048
     Dates: start: 20050628, end: 20051106
  2. DEXAMETHASONE TAB [Suspect]
     Indication: MULTIPLE MYELOMA
     Dosage: 40 MG, DAILY ON DAYS 1-4, 9-12, AND 17-20, ORAL
     Route: 048
     Dates: start: 20050628

REACTIONS (5)
  - DRUG TOXICITY [None]
  - FATIGUE [None]
  - HYPOALBUMINAEMIA [None]
  - MUSCULAR WEAKNESS [None]
  - ORAL CANDIDIASIS [None]
